FAERS Safety Report 10390295 (Version 1)
Quarter: 2014Q3

REPORT INFORMATION
  Report Type: Spontaneous
  Country: US (occurrence: None)
  Receive Date: 20140814
  Receipt Date: 20140814
  Transmission Date: 20150326
  Serious: Yes (Disabling, Other)
  Sender: FDA-Public Use
  Company Number: 2014-19885

PATIENT
  Age: 77 Year
  Sex: Female

DRUGS (12)
  1. MIRTAZAPINE (MIRTAZAPINE) [Concomitant]
     Active Substance: MIRTAZAPINE
  2. TRAMADOL (TRAMADOL) [Concomitant]
     Active Substance: TRAMADOL
  3. DESVENLAFAXINE (DESVENLAFAXINE) [Concomitant]
  4. ASPIRIN. [Concomitant]
     Active Substance: ASPIRIN
  5. COLCHICINE (COLCHICINE) [Concomitant]
     Active Substance: COLCHICINE
  6. METOPROLOL (METOPROLOL) [Concomitant]
     Active Substance: METOPROLOL
  7. GLIMEPIRIDE (GLIMEPIRIDE) [Concomitant]
     Active Substance: GLIMEPIRIDE
  8. METFORMIN [Concomitant]
     Active Substance: METFORMIN HYDROCHLORIDE
  9. EYLEA [Suspect]
     Active Substance: AFLIBERCEPT
     Indication: AGE-RELATED MACULAR DEGENERATION
     Dates: start: 20140624
  10. GABAPENTIN (GABAPENTIN) [Concomitant]
     Active Substance: GABAPENTIN
  11. CLOPIDOGREL [Concomitant]
     Active Substance: CLOPIDOGREL BISULFATE
  12. TELMISATRAN (TELMISARTAN) [Concomitant]

REACTIONS (6)
  - Non-infectious endophthalmitis [None]
  - Vision blurred [None]
  - Vitreous floaters [None]
  - Pain [None]
  - Blindness transient [None]
  - Vitritis [None]

NARRATIVE: CASE EVENT DATE: 20140626
